FAERS Safety Report 7973770 (Version 2)
Quarter: 2013Q3

REPORT INFORMATION
  Report Type: Spontaneous
  Country: US (occurrence: US)
  Receive Date: 20110603
  Receipt Date: 20130812
  Transmission Date: 20140515
  Serious: Yes (Hospitalization)
  Sender: FDA-Public Use
  Company Number: US-B.I. PHARMACEUTICALS,INC./RIDGEFIELD-2011-BP-10088BP

PATIENT
  Age: 90 Year
  Sex: Male
  Weight: 96.62 kg

DRUGS (18)
  1. PRADAXA [Suspect]
     Indication: ATRIAL FIBRILLATION
     Route: 048
     Dates: start: 201102, end: 20110220
  2. PRADAXA [Suspect]
     Indication: AORTIC VALVE REPLACEMENT
  3. DIGOXIN [Concomitant]
     Dosage: 0.125 MG
  4. COREG [Concomitant]
     Dosage: 75 MG
  5. ALEVE [Concomitant]
     Dosage: 660 MG
  6. ASA [Concomitant]
     Dosage: 325 MG
  7. TOVIA [Concomitant]
     Dosage: 8 MG
  8. TAMSULOSIN [Concomitant]
     Dosage: 0.4 MG
  9. MULTAQ [Concomitant]
     Dosage: 800 MG
  10. LIDODERM [Concomitant]
  11. FENTANYL [Concomitant]
     Route: 061
  12. POTASSIUM CHLORIDE [Concomitant]
     Dosage: 30 MEQ
  13. SIMVASTATIN [Concomitant]
     Dosage: 20 MG
  14. ACTOS [Concomitant]
     Dosage: 30 MG
  15. LYRICA [Concomitant]
     Dosage: 150 MG
  16. ZETIA [Concomitant]
     Dosage: 10 MG
  17. LASIX [Concomitant]
     Dosage: 40 MG
  18. FISH OIL [Concomitant]
     Dosage: 2400 MG

REACTIONS (1)
  - Gastrointestinal haemorrhage [Recovered/Resolved]
